FAERS Safety Report 18861488 (Version 2)
Quarter: 2021Q2

REPORT INFORMATION
  Report Type: Report from Study
  Country: BR (occurrence: BR)
  Receive Date: 20210208
  Receipt Date: 20210419
  Transmission Date: 20210717
  Serious: Yes (Other)
  Sender: FDA-Public Use
  Company Number: NVSC2021BR023207

PATIENT
  Age: 66 Year
  Sex: Male

DRUGS (6)
  1. ENTRESTO [Suspect]
     Active Substance: SACUBITRIL\VALSARTAN
     Indication: CARDIAC FAILURE
     Dosage: 100 MG, UNKNOWN (49/51 MG)
     Route: 065
  2. LEVOFLOXACIN SANDOZ [Concomitant]
     Active Substance: LEVOFLOXACIN
     Indication: PRODUCT USED FOR UNKNOWN INDICATION
     Dosage: UNK
     Route: 065
  3. BISSULFATO DE CLOPIDOGREL [Concomitant]
     Indication: PRODUCT USED FOR UNKNOWN INDICATION
     Dosage: UNK
     Route: 065
  4. ENTRESTO [Suspect]
     Active Substance: SACUBITRIL\VALSARTAN
     Dosage: 200 MG, QD (2 TABLETS, 97MG/103 MG)
     Route: 065
  5. AZITHROMYCIN ANHYDROUS. [Concomitant]
     Active Substance: AZITHROMYCIN ANHYDROUS
     Indication: PRODUCT USED FOR UNKNOWN INDICATION
     Dosage: UNK
     Route: 065
  6. ENTRESTO [Suspect]
     Active Substance: SACUBITRIL\VALSARTAN
     Indication: CARDIAC FAILURE
     Dosage: 200 MG, QD (97MG/103 MG)
     Route: 065

REACTIONS (14)
  - Ageusia [Recovered/Resolved with Sequelae]
  - Pain [Recovering/Resolving]
  - Anosmia [Recovered/Resolved with Sequelae]
  - Fatigue [Recovering/Resolving]
  - Diabetes mellitus [Unknown]
  - Malaise [Unknown]
  - Cardiac failure [Unknown]
  - Dyspnoea [Recovering/Resolving]
  - Catarrh [Unknown]
  - Inappropriate schedule of product administration [Unknown]
  - Visual impairment [Unknown]
  - Chest pain [Recovering/Resolving]
  - Infarction [Unknown]
  - COVID-19 [Recovered/Resolved with Sequelae]

NARRATIVE: CASE EVENT DATE: 202011
